FAERS Safety Report 10264764 (Version 1)
Quarter: 2014Q2

REPORT INFORMATION
  Report Type: Spontaneous
  Country: US (occurrence: US)
  Receive Date: 20140627
  Receipt Date: 20140627
  Transmission Date: 20141212
  Serious: No
  Sender: FDA-Public Use
  Company Number: US-SHIRE-US201403079

PATIENT
  Sex: Male

DRUGS (5)
  1. FIRAZYR [Suspect]
     Indication: HEREDITARY ANGIOEDEMA
     Dosage: UNK, UNKNOWN
     Route: 058
  2. ATARAX                             /00058401/ [Concomitant]
     Indication: URTICARIA
     Dosage: 50 MG, AS REQ^D (AT NIGHT)
     Route: 048
  3. ANTIHISTAMINES [Concomitant]
     Indication: HYPERSENSITIVITY
     Dosage: UNK, UNKNOWN
     Route: 048
  4. NAPROSYN                           /00256201/ [Concomitant]
     Indication: ANALGESIC THERAPY
     Dosage: UNK, AS REQ^D
     Route: 048
  5. EPIPEN [Concomitant]
     Indication: ALLERGY TO ARTHROPOD STING
     Dosage: UNK, UNKNOWN
     Route: 065

REACTIONS (2)
  - Nonspecific reaction [Unknown]
  - Injection site pain [Unknown]
